FAERS Safety Report 14539605 (Version 1)
Quarter: 2018Q1

REPORT INFORMATION
  Report Type: Report from Study
  Country: CA (occurrence: CA)
  Receive Date: 20180216
  Receipt Date: 20180216
  Transmission Date: 20180509
  Serious: Yes (Other)
  Sender: FDA-Public Use
  Company Number: CA-AMGEN-CANSL2017100876

PATIENT
  Age: 78 Year
  Sex: Female

DRUGS (4)
  1. BIO K PLUS [Concomitant]
     Dosage: UNK UNK, ONE TIME DOSE
  2. PROLIA [Suspect]
     Active Substance: DENOSUMAB
     Indication: PRODUCT USED FOR UNKNOWN INDICATION
     Dosage: UNK
     Route: 065
     Dates: start: 20160120
  3. PENTOXIFYLLIN [Concomitant]
     Active Substance: PENTOXIFYLLINE
     Dosage: 400 MG, BID
  4. AMOXICLAV [Concomitant]
     Active Substance: AMOXICILLIN\CLAVULANIC ACID
     Dosage: 875 MG, BID

REACTIONS (7)
  - Osteomyelitis [Unknown]
  - Implant site pain [Not Recovered/Not Resolved]
  - Joint stiffness [Unknown]
  - Fatigue [Unknown]
  - Device related infection [Recovered/Resolved]
  - Weight decreased [Unknown]
  - Artificial crown procedure [Unknown]
